FAERS Safety Report 7827635-8 (Version None)
Quarter: 2011Q4

REPORT INFORMATION
  Report Type: 
  Country: None (occurrence: None)
  Receive Date: 20111020
  Receipt Date: 20111012
  Transmission Date: 20120403
  Serious: Yes (Hospitalization)
  Sender: FDA-Public Use
  Company Number: US-ASTRAZENECA-2010SE10611

PATIENT
  Age: 56 Year
  Sex: Female

DRUGS (5)
  1. PREDNISONE [Concomitant]
  2. PULMICORT [Suspect]
     Route: 055
  3. DUONEB [Concomitant]
  4. CRESTOR [Suspect]
     Route: 048
  5. ACCOLATE [Suspect]
     Route: 048

REACTIONS (6)
  - BRONCHITIS [None]
  - MYCOTIC ALLERGY [None]
  - DIABETES MELLITUS [None]
  - RESPIRATORY DISORDER [None]
  - HERPES ZOSTER [None]
  - ANXIETY DISORDER [None]
